FAERS Safety Report 9535380 (Version 2)
Quarter: 2013Q3

REPORT INFORMATION
  Report Type: Spontaneous
  Country: IE (occurrence: IE)
  Receive Date: 20130918
  Receipt Date: 20130926
  Transmission Date: 20140515
  Serious: Yes (Other)
  Sender: FDA-Public Use
  Company Number: IE-MALLINCKRODT-T201304381

PATIENT
  Age: 57 Year
  Sex: Male

DRUGS (1)
  1. OPTIRAY 300 [Suspect]
     Indication: COMPUTERISED TOMOGRAM
     Dosage: 21MLS/SEC.
     Route: 042
     Dates: start: 20130911, end: 20130911

REACTIONS (3)
  - Convulsion [Recovered/Resolved]
  - Dyskinesia [Recovered/Resolved]
  - Vision blurred [Recovered/Resolved]
